FAERS Safety Report 16821553 (Version 5)
Quarter: 2020Q4

REPORT INFORMATION
  Report Type: Spontaneous
  Country: US (occurrence: US)
  Receive Date: 20190918
  Receipt Date: 20201124
  Transmission Date: 20210113
  Serious: Yes (Other)
  Sender: FDA-Public Use
  Company Number: US-PFIZER INC-2018441642

PATIENT
  Age: 71 Year
  Sex: Female
  Weight: 50 kg

DRUGS (2)
  1. LYRICA [Suspect]
     Active Substance: PREGABALIN
     Dosage: 1650 MG, TWICE A DAY (11 CAP PO (PER ORAL) Q12H (ONCE IN 12 HOURS)
     Route: 048
  2. LYRICA [Suspect]
     Active Substance: PREGABALIN
     Indication: NEUROPATHY PERIPHERAL
     Dosage: 150 MG, 2X/DAY
     Route: 048

REACTIONS (5)
  - Scoliosis [Unknown]
  - Prescribed overdose [Unknown]
  - Drug ineffective [Unknown]
  - Expired product administered [Unknown]
  - Back disorder [Unknown]
